FAERS Safety Report 8818308 (Version 6)
Quarter: 2014Q1

REPORT INFORMATION
  Report Type: Report from Study
  Country: JP (occurrence: JP)
  Receive Date: 20121002
  Receipt Date: 20140124
  Transmission Date: 20141002
  Serious: Yes (Hospitalization, Other)
  Sender: FDA-Public Use
  Company Number: JP-VERTEX PHARMACEUTICAL INC.-2012-022001

PATIENT
  Age: 64 Year
  Sex: Male

DRUGS (23)
  1. VX-950 (TELAPREVIR) [Suspect]
     Indication: CHRONIC HEPATITIS C
     Dosage: 1500 MG, QD
     Route: 048
     Dates: start: 20120719, end: 20120923
  2. REBETOL [Suspect]
     Indication: CHRONIC HEPATITIS C
     Dosage: 800 MG, QD
     Route: 048
     Dates: start: 20120719, end: 20120729
  3. REBETOL [Suspect]
     Dosage: 600 MG, QD
     Route: 048
     Dates: start: 20120730, end: 20120801
  4. REBETOL [Suspect]
     Dosage: 400 MG, QD
     Route: 048
     Dates: start: 20120802, end: 20120808
  5. REBETOL [Suspect]
     Dosage: 200 MG, QD
     Route: 048
     Dates: start: 20120809, end: 20120923
  6. PEGINTRON [Suspect]
     Indication: CHRONIC HEPATITIS C
     Dosage: 1.5 ?G/KG, QW
     Route: 058
     Dates: start: 20120719, end: 20120920
  7. CALONAL [Concomitant]
     Dosage: 800 MG, PRN
     Route: 048
     Dates: start: 20120719, end: 20121005
  8. GASTER D [Concomitant]
     Dosage: 20 MG, PRN
     Route: 048
     Dates: start: 20120719, end: 20120816
  9. ZYLORIC [Concomitant]
     Dosage: 200 MG, QD
     Route: 048
     Dates: start: 20120721, end: 20120803
  10. MAGMITT [Concomitant]
     Dosage: 990 MG, PRN
     Route: 048
     Dates: start: 20120721, end: 20120727
  11. LAXOBERON [Concomitant]
     Dosage: 10 DF, PRN
     Route: 048
     Dates: start: 20120721, end: 20120727
  12. FEBURIC [Concomitant]
     Dosage: 10 MG, QD
     Route: 048
     Dates: start: 20120816, end: 20120823
  13. FEBURIC [Concomitant]
     Dosage: 20 MG, QD
     Route: 048
     Dates: start: 20120823, end: 20120905
  14. FEBURIC [Concomitant]
     Dosage: 30 MG, UNK
     Route: 048
     Dates: start: 20120906, end: 20120919
  15. FEBURIC [Concomitant]
     Dosage: 40 MG, UNK
     Route: 048
     Dates: start: 20120920, end: 20120928
  16. PROTECADIN [Concomitant]
     Dosage: 10 MG, QD
     Route: 048
     Dates: start: 20120906, end: 20120928
  17. RHYTHMY [Concomitant]
     Dosage: 1 MG, QD
     Route: 048
     Dates: start: 20120920, end: 20120923
  18. ROZEREM [Concomitant]
     Dosage: 8 MG, QD
     Route: 048
     Dates: start: 20121005, end: 20121019
  19. LENDORMIN DAINIPPO [Concomitant]
     Dosage: 0.25 MG, QD
     Route: 048
     Dates: start: 20121005, end: 20121019
  20. LAMISIL [Concomitant]
     Dosage: UNK, QD
     Route: 061
     Dates: start: 20121018
  21. HIRUDOID [Concomitant]
     Dosage: UNK
     Route: 061
     Dates: start: 20121018
  22. RINDERON-VG [Concomitant]
     Dosage: UNK
     Route: 061
     Dates: start: 20121018
  23. VALTREX [Concomitant]
     Dosage: 3000 MG, QD
     Route: 048
     Dates: start: 20120801, end: 20120807

REACTIONS (6)
  - Sepsis [Not Recovered/Not Resolved]
  - Prostatitis [Recovered/Resolved]
  - Blood creatinine increased [Recovered/Resolved]
  - Platelet count decreased [Not Recovered/Not Resolved]
  - Diarrhoea [Recovered/Resolved]
  - Vomiting [Recovered/Resolved]
